FAERS Safety Report 4929918-8 (Version None)
Quarter: 2006Q1

REPORT INFORMATION
  Report Type: 
  Country: None (occurrence: None)
  Receive Date: 20060301
  Receipt Date: 20051223
  Transmission Date: 20060701
  Serious: Yes (Death)
  Sender: FDA-Public Use
  Company Number: US-MERCK-0512USA03763

PATIENT
  Age: 40 Year
  Sex: Male
  Weight: 91 kg

DRUGS (1)
  1. VIOXX [Suspect]
     Route: 048
     Dates: start: 20020101, end: 20020328

REACTIONS (1)
  - MYOCARDIAL INFARCTION [None]
